FAERS Safety Report 25474175 (Version 1)
Quarter: 2025Q2

REPORT INFORMATION
  Report Type: Spontaneous
  Country: US (occurrence: None)
  Receive Date: 20250623
  Receipt Date: 20250623
  Transmission Date: 20250717
  Serious: Yes (Hospitalization, Disabling)
  Sender: FDA-CTU
  Company Number: None

PATIENT
  Age: 72 Year
  Sex: Male
  Weight: 94.5 kg

DRUGS (23)
  1. MIRTAZAPINE [Suspect]
     Active Substance: MIRTAZAPINE
     Indication: Depression
     Dates: start: 20000101
  2. MIRTAZAPINE [Suspect]
     Active Substance: MIRTAZAPINE
  3. MIRTAZAPINE [Suspect]
     Active Substance: MIRTAZAPINE
  4. CYCLOBENZAPRINE [Concomitant]
     Active Substance: CYCLOBENZAPRINE
  5. Amlodipine valsartin [Concomitant]
  6. CLONAZEPAM [Concomitant]
     Active Substance: CLONAZEPAM
  7. SERTRALINE HYDROCHLORIDE [Concomitant]
     Active Substance: SERTRALINE HYDROCHLORIDE
  8. TAMSULOSIN [Concomitant]
     Active Substance: TAMSULOSIN
  9. OMEPRAZOLE [Concomitant]
     Active Substance: OMEPRAZOLE
  10. FAMOTIDINE [Concomitant]
     Active Substance: FAMOTIDINE
  11. atotvastatin [Concomitant]
  12. EPLERENONE [Concomitant]
     Active Substance: EPLERENONE
  13. TIZANIDINE [Concomitant]
     Active Substance: TIZANIDINE
  14. MAGNESIUM [Concomitant]
     Active Substance: MAGNESIUM
  15. CALCIUM [Concomitant]
     Active Substance: CALCIUM
  16. VITAMINS [Concomitant]
     Active Substance: VITAMINS
  17. ZINC [Concomitant]
     Active Substance: ZINC
  18. VITAMIN D3 [Concomitant]
     Active Substance: CHOLECALCIFEROL
  19. VITAMIN C [Concomitant]
     Active Substance: ASCORBIC ACID
  20. GARLIC [Concomitant]
     Active Substance: GARLIC
  21. QUERCETIN [Concomitant]
     Active Substance: QUERCETIN
  22. NAC [Concomitant]
  23. Leutain [Concomitant]

REACTIONS (10)
  - Therapy change [None]
  - Insomnia [None]
  - Tremor [None]
  - Musculoskeletal stiffness [None]
  - Musculoskeletal stiffness [None]
  - Seizure [None]
  - Muscle spasms [None]
  - Hyperventilation [None]
  - Dehydration [None]
  - COVID-19 [None]

NARRATIVE: CASE EVENT DATE: 20230802
